FAERS Safety Report 10557340 (Version 1)
Quarter: 2014Q4

REPORT INFORMATION
  Report Type: Spontaneous
  Country: US (occurrence: None)
  Receive Date: 20141030
  Receipt Date: 20141030
  Transmission Date: 20150529
  Serious: Yes (Disabling)
  Sender: FDA-Public Use
  Company Number: None

PATIENT
  Age: 30 Year
  Sex: Male
  Weight: 63.5 kg

DRUGS (1)
  1. LEVAQUIN [Suspect]
     Active Substance: LEVOFLOXACIN
     Indication: SINUSITIS
     Dosage: 2 PILLS, TWICE DAILY
     Dates: start: 20140928, end: 20140929

REACTIONS (3)
  - Tendon pain [None]
  - Tendon disorder [None]
  - Swelling [None]

NARRATIVE: CASE EVENT DATE: 20140928
